FAERS Safety Report 16046740 (Version 12)
Quarter: 2021Q4

REPORT INFORMATION
  Report Type: Spontaneous
  Country: US (occurrence: US)
  Receive Date: 20190307
  Receipt Date: 20211229
  Transmission Date: 20220303
  Serious: No
  Sender: FDA-Public Use
  Company Number: US-PFIZER INC-2018262475

PATIENT
  Age: 8 Year
  Sex: Female
  Weight: 18.6 kg

DRUGS (5)
  1. GENOTROPIN [Suspect]
     Active Substance: SOMATROPIN
     Indication: Short stature
     Dosage: 0.8 MG, ONCE DAILY (7 DAYS WEEK)
     Route: 058
     Dates: start: 201803
  2. GENOTROPIN [Suspect]
     Active Substance: SOMATROPIN
     Indication: Growth hormone deficiency
     Dosage: 0.9 MG, ONCE DAILY (EVERY NIGHT OF THE WEEK)
     Route: 058
     Dates: start: 201804
  3. GENOTROPIN [Suspect]
     Active Substance: SOMATROPIN
     Indication: Blood growth hormone decreased
     Dosage: 1 MG, DAILY
     Route: 058
     Dates: start: 2018
  4. GENOTROPIN [Suspect]
     Active Substance: SOMATROPIN
     Indication: Dihydropyrimidine dehydrogenase deficiency
     Dosage: 1 MG, ONCE DAILY
     Route: 058
  5. GENOTROPIN [Suspect]
     Active Substance: SOMATROPIN
     Indication: Growth retardation
     Dosage: 1 MG, ONCE DAILY
     Route: 058

REACTIONS (3)
  - Injection site extravasation [Unknown]
  - Device use error [Unknown]
  - Off label use [Unknown]

NARRATIVE: CASE EVENT DATE: 20180301
